FAERS Safety Report 9364875 (Version 2)
Quarter: 2013Q4

REPORT INFORMATION
  Report Type: Spontaneous
  Country: US (occurrence: US)
  Receive Date: 20130624
  Receipt Date: 20131210
  Transmission Date: 20140711
  Serious: Yes (Hospitalization)
  Sender: FDA-Public Use
  Company Number: US-B.I. PHARMACEUTICALS,INC./RIDGEFIELD-2013-BI-17543BP

PATIENT
  Sex: Male
  Weight: 80.74 kg

DRUGS (16)
  1. PRADAXA [Suspect]
     Indication: ANTICOAGULANT THERAPY
     Dosage: 300 MG
     Route: 048
     Dates: start: 20110406, end: 20110607
  2. PRADAXA [Suspect]
     Indication: ATRIAL FIBRILLATION
  3. COUMADIN [Suspect]
     Indication: ATRIAL FIBRILLATION
     Dosage: 2.8571 MG
     Dates: start: 201106, end: 20110613
  4. COUMADIN [Suspect]
     Dosage: 0.7143 MG
     Dates: start: 201106, end: 20110613
  5. ASPIRIN [Concomitant]
     Dosage: 81 MG
  6. BIMATOPROST [Concomitant]
     Indication: GLAUCOMA
  7. DILTIAZEM [Concomitant]
     Dosage: 120 MG
  8. DORZOLAMIDE/TIMOLOL [Concomitant]
     Indication: GLAUCOMA
     Dates: start: 2009
  9. DYAZIDE [Concomitant]
     Indication: HYPERTENSION
  10. KETOROLAC [Concomitant]
     Indication: GLAUCOMA
     Dates: start: 2007
  11. MAGNESIUM OXIDE [Concomitant]
     Dosage: 400 MG
     Dates: start: 2010
  12. TOPROL XL [Concomitant]
     Indication: HYPERTENSION
     Dosage: 12.5 MG
     Dates: start: 2010
  13. PREDNISONE [Concomitant]
     Indication: GLAUCOMA
  14. INDOMETHACIN [Concomitant]
     Indication: GOUT
  15. VIAGRA [Concomitant]
     Indication: ERECTILE DYSFUNCTION
  16. PRAVASTATIN [Concomitant]
     Indication: HYPERLIPIDAEMIA
     Dosage: 40 MG
     Dates: start: 2003

REACTIONS (6)
  - Gastrointestinal haemorrhage [Unknown]
  - Anaemia [Unknown]
  - Coagulopathy [Unknown]
  - Dyspepsia [Recovered/Resolved]
  - Visual acuity reduced [Unknown]
  - Balance disorder [Unknown]
